FAERS Safety Report 9068886 (Version 1)
Quarter: 2013Q1

REPORT INFORMATION
  Report Type: Spontaneous
  Country: US (occurrence: None)
  Receive Date: 20130212
  Receipt Date: 20130212
  Transmission Date: 20140127
  Serious: No
  Sender: FDA-Public Use
  Company Number: None

PATIENT
  Age: 85 Year
  Sex: 0

DRUGS (3)
  1. GABAPENTIN [Suspect]
     Route: 048
     Dates: start: 20130117
  2. ZONESAMIDE [Concomitant]
  3. KEPPRA [Concomitant]

REACTIONS (5)
  - Hypersomnia [None]
  - Vision blurred [None]
  - Laziness [None]
  - Feeling abnormal [None]
  - Somnolence [None]
